FAERS Safety Report 6668316-6 (Version None)
Quarter: 2010Q2

REPORT INFORMATION
  Report Type: 
  Country: None (occurrence: None)
  Receive Date: 20100406
  Receipt Date: 20100325
  Transmission Date: 20101027
  Serious: Yes (Hospitalization)
  Sender: FDA-Public Use
  Company Number: FR-TYCO HEALTHCARE/MALLINCKRODT-T201000891

PATIENT
  Sex: Female

DRUGS (2)
  1. TECHNESCAN [Suspect]
     Indication: BONE SCAN
     Dosage: 0.43 MG, SINGLE
     Route: 042
     Dates: start: 20100127, end: 20100127
  2. ULTRA-TECHNEKOW FM [Suspect]
     Indication: BONE SCAN
     Dosage: 709 MBQ, SINGLE
     Route: 042
     Dates: start: 20100127, end: 20100127

REACTIONS (6)
  - CHEST PAIN [None]
  - CHILLS [None]
  - DYSPNOEA [None]
  - ERYTHEMA [None]
  - MALAISE [None]
  - TREMOR [None]
